FAERS Safety Report 12743499 (Version 1)
Quarter: 2016Q3

REPORT INFORMATION
  Report Type: Spontaneous
  Country: US (occurrence: US)
  Receive Date: 20160914
  Receipt Date: 20160914
  Transmission Date: 20161109
  Serious: No
  Sender: FDA-Public Use
  Company Number: None

PATIENT

DRUGS (1)
  1. OXCARBAZEPINE 300MG/5ML, 300 MG AMNEAL [Suspect]
     Active Substance: OXCARBAZEPINE
     Indication: PRODUCT USED FOR UNKNOWN INDICATION
     Dosage: 4 MLS AM   5 MLS PM
     Route: 048

REACTIONS (2)
  - Product physical consistency issue [None]
  - Dysgeusia [None]

NARRATIVE: CASE EVENT DATE: 20160822
